FAERS Safety Report 6983416-9 (Version None)
Quarter: 2010Q3

REPORT INFORMATION
  Report Type: 
  Country: None (occurrence: None)
  Receive Date: 20100914
  Receipt Date: 20100914
  Transmission Date: 20110219
  Serious: Yes (Hospitalization)
  Sender: FDA-Public Use
  Company Number: None

PATIENT
  Sex: Male
  Weight: 49 kg

DRUGS (6)
  1. FLUOROURACIL [Suspect]
     Dosage: 12112 MG
     Dates: end: 20100731
  2. ERBITUX [Suspect]
     Dosage: 2160 MG
     Dates: end: 20100805
  3. LEUCOVORIN CALCIUM [Suspect]
     Dosage: 1720 MG
     Dates: end: 20100729
  4. ELOXATIN [Suspect]
     Dosage: 368 MG
     Dates: end: 20100729
  5. PERCOCET [Concomitant]
  6. ZOFRAN [Concomitant]

REACTIONS (5)
  - ANAEMIA [None]
  - DEVICE RELATED INFECTION [None]
  - DUODENAL ULCER [None]
  - GASTROINTESTINAL HAEMORRHAGE [None]
  - SERRATIA TEST POSITIVE [None]
